FAERS Safety Report 21150077 (Version 5)
Quarter: 2022Q4

REPORT INFORMATION
  Report Type: Spontaneous
  Country: US (occurrence: US)
  Receive Date: 20220729
  Receipt Date: 20221227
  Transmission Date: 20230113
  Serious: No
  Sender: FDA-Public Use
  Company Number: US-PFIZER INC-PV202200032925

PATIENT
  Age: 72 Year
  Sex: Female

DRUGS (1)
  1. SUTENT [Suspect]
     Active Substance: SUNITINIB MALATE
     Dosage: 50 MG, DAILY (TAKE 1 CAPSULE DAILY)

REACTIONS (11)
  - Diarrhoea [Unknown]
  - Fatigue [Unknown]
  - Dizziness [Unknown]
  - Headache [Unknown]
  - Glossodynia [Unknown]
  - Vision blurred [Unknown]
  - Ageusia [Recovering/Resolving]
  - Anosmia [Recovering/Resolving]
  - Sinusitis [Unknown]
  - Haemoglobin decreased [Unknown]
  - Neoplasm progression [Unknown]
